FAERS Safety Report 6771679-4 (Version None)
Quarter: 2010Q2

REPORT INFORMATION
  Report Type: 
  Country: None (occurrence: None)
  Receive Date: 20100616
  Receipt Date: 20090831
  Transmission Date: 20101027
  Serious: No
  Sender: FDA-Public Use
  Company Number: US-ASTRAZENECA-2009SE10902

PATIENT
  Age: 86 Year
  Sex: Male
  Weight: 81.6 kg

DRUGS (2)
  1. ATACAND HCT AND RATACAND PLUS [Suspect]
     Dosage: ATACAND HCT
     Route: 048
  2. ATACAND HCT AND RATACAND PLUS [Suspect]
     Dosage: RATACAND (CANDESARTAN CILEXETIL HIDROCLOROTIAZIDE)
     Route: 048

REACTIONS (2)
  - DIARRHOEA [None]
  - POLLAKIURIA [None]
